FAERS Safety Report 10255610 (Version 1)
Quarter: 2014Q2

REPORT INFORMATION
  Report Type: Spontaneous
  Country: US (occurrence: US)
  Receive Date: 20140624
  Receipt Date: 20140624
  Transmission Date: 20141212
  Serious: No
  Sender: FDA-Public Use
  Company Number: US-PFIZER INC-2014168821

PATIENT
  Age: 40 Year
  Sex: Female
  Weight: 76.19 kg

DRUGS (4)
  1. LYRICA [Suspect]
     Indication: INTERVERTEBRAL DISC DEGENERATION
     Dosage: 75 MG, DAILY
     Dates: start: 201401
  2. LYRICA [Suspect]
     Dosage: 75 MG, 2X/DAY
  3. SYNTHROID [Concomitant]
     Indication: AUTOIMMUNE THYROIDITIS
     Dosage: 75 UG, DAILY
  4. CYTOMEL [Concomitant]
     Indication: AUTOIMMUNE THYROIDITIS
     Dosage: 5 UG, DAILY

REACTIONS (3)
  - Therapeutic response changed [Unknown]
  - Pre-existing condition improved [Unknown]
  - Fatigue [Unknown]
